FAERS Safety Report 21450219 (Version 1)
Quarter: 2022Q4

REPORT INFORMATION
  Report Type: Spontaneous
  Country: FR (occurrence: FR)
  Receive Date: 20221013
  Receipt Date: 20221013
  Transmission Date: 20230113
  Serious: Yes (Other)
  Sender: FDA-Public Use
  Company Number: FR-SAMSUNG BIOEPIS-SB-2022-25747

PATIENT
  Age: 45 Year
  Sex: Female

DRUGS (13)
  1. INFLIXIMAB [Suspect]
     Active Substance: INFLIXIMAB
     Indication: Mycoplasma infection
     Dosage: UNKNOWN
     Route: 065
     Dates: start: 202002
  2. INFLIXIMAB [Suspect]
     Active Substance: INFLIXIMAB
     Indication: Ureaplasma infection
  3. CYCLOPHOSPHAMIDE [Concomitant]
     Active Substance: CYCLOPHOSPHAMIDE
     Indication: Follicular lymphoma
     Dosage: UNKNOWN, SIX CYCLES
     Route: 065
  4. DOXORUBICIN [Concomitant]
     Active Substance: DOXORUBICIN
     Indication: Follicular lymphoma
     Dosage: UNKNOWN, SIX CYCLES
     Route: 065
  5. VINCRISTINE [Concomitant]
     Active Substance: VINCRISTINE
     Indication: Follicular lymphoma
     Dosage: UNKNOWN, SIX CYCLES
     Route: 065
  6. PREDNISONE [Concomitant]
     Active Substance: PREDNISONE
     Indication: Follicular lymphoma
     Dosage: UNKNOWN, SIX CYCLES
     Route: 065
  7. CEFOTAXIME [Concomitant]
     Active Substance: CEFOTAXIME SODIUM
     Indication: Mycoplasma infection
     Dosage: UNKNOWN
     Route: 065
  8. CEFOTAXIME [Concomitant]
     Active Substance: CEFOTAXIME SODIUM
     Indication: Ureaplasma infection
  9. PIPERACILLIN SODIUM\TAZOBACTAM SODIUM [Concomitant]
     Active Substance: PIPERACILLIN SODIUM\TAZOBACTAM SODIUM
     Indication: Mycoplasma infection
     Dosage: UNKNOWN
     Route: 065
  10. PIPERACILLIN SODIUM\TAZOBACTAM SODIUM [Concomitant]
     Active Substance: PIPERACILLIN SODIUM\TAZOBACTAM SODIUM
     Indication: Ureaplasma infection
  11. IMIPENEM [Concomitant]
     Active Substance: IMIPENEM
     Indication: Mycoplasma infection
     Dosage: UNKNOWN
     Route: 065
  12. IMIPENEM [Concomitant]
     Active Substance: IMIPENEM
     Indication: Ureaplasma infection
  13. COLCHICINE [Concomitant]
     Active Substance: COLCHICINE
     Indication: Product used for unknown indication
     Dosage: UNKNOWN
     Route: 065

REACTIONS (3)
  - Mycoplasma infection [Recovered/Resolved with Sequelae]
  - Ureaplasma infection [Recovered/Resolved with Sequelae]
  - Off label use [Unknown]
